FAERS Safety Report 5511699-0 (Version None)
Quarter: 2007Q4

REPORT INFORMATION
  Report Type: 
  Country: None (occurrence: None)
  Receive Date: 20071109
  Receipt Date: 20071102
  Transmission Date: 20080405
  Serious: Yes (Death, Hospitalization, Other)
  Sender: FDA-Public Use
  Company Number: FR-ABBOTT-07P-056-0423252-00

PATIENT
  Sex: Male

DRUGS (2)
  1. DEPAKENE [Suspect]
     Indication: EPILEPSY
     Route: 048
     Dates: start: 20061001
  2. DEPAKENE [Suspect]
     Dosage: PROGRESSIVE WEANING
     Route: 048

REACTIONS (13)
  - ABNORMAL BEHAVIOUR [None]
  - CEREBRAL DISORDER [None]
  - COGNITIVE DISORDER [None]
  - EXTRAPYRAMIDAL DISORDER [None]
  - FALL [None]
  - HEAD INJURY [None]
  - JUDGEMENT IMPAIRED [None]
  - MUSCLE SPASMS [None]
  - MUSCULOSKELETAL STIFFNESS [None]
  - NERVOUS SYSTEM DISORDER [None]
  - POOR PERSONAL HYGIENE [None]
  - SUBDURAL HAEMATOMA [None]
  - TREMOR [None]
